FAERS Safety Report 9840994 (Version 2)
Quarter: 2014Q1

REPORT INFORMATION
  Report Type: Spontaneous
  Country: JP (occurrence: JP)
  Receive Date: 20140124
  Receipt Date: 20140218
  Transmission Date: 20141002
  Serious: Yes (Other)
  Sender: FDA-Public Use
  Company Number: JP-ASTELLAS-2014US000663

PATIENT
  Age: 68 Year
  Sex: Female

DRUGS (1)
  1. TARCEVA [Suspect]
     Indication: LUNG ADENOCARCINOMA
     Dosage: 75 MG, UID/QD
     Route: 048
     Dates: start: 20120426, end: 20120719

REACTIONS (2)
  - Incorrect dose administered [Unknown]
  - Agranulocytosis [Recovered/Resolved]
